FAERS Safety Report 4772390-1 (Version None)
Quarter: 2005Q3

REPORT INFORMATION
  Report Type: 
  Country: None (occurrence: None)
  Receive Date: 20050919
  Receipt Date: 20050414
  Transmission Date: 20060218
  Serious: No
  Sender: FDA-Public Use
  Company Number: US-BRISTOL-MYERS SQUIBB COMPANY-12933230

PATIENT
  Age: 1 Year
  Sex: Female

DRUGS (1)
  1. KENALOG-40 [Suspect]
     Indication: RESPIRATORY DISORDER
     Dates: start: 20041114

REACTIONS (1)
  - INJECTION SITE ATROPHY [None]
